FAERS Safety Report 8804396 (Version 2)
Quarter: 2013Q1

REPORT INFORMATION
  Report Type: Spontaneous
  Country: US (occurrence: US)
  Receive Date: 20120924
  Receipt Date: 20130121
  Transmission Date: 20140127
  Serious: Yes (Other)
  Sender: FDA-Public Use
  Company Number: US-BAYER-2012-097724

PATIENT
  Age: 21 Year
  Sex: Female
  Weight: 72.56 kg

DRUGS (7)
  1. YAZ [Suspect]
     Dosage: UNK
  2. YASMIN [Suspect]
     Dosage: UNK
  3. OCELLA [Suspect]
     Dosage: UNK
  4. HEPATITIS A VACCINE W/HEPATITIS B VACCINE [Concomitant]
     Dosage: UNK
     Dates: start: 200908, end: 200908
  5. MEASLES VIRUS VACCINE LIVE ATTENUATED [Concomitant]
     Dosage: UNK
     Dates: start: 200908
  6. MUMPS VACCINE [Concomitant]
     Dosage: UNK
     Dates: start: 200908
  7. RUBELLA VACCINE [Concomitant]
     Dosage: UNK
     Dates: start: 200908

REACTIONS (3)
  - Injury [None]
  - Pulmonary embolism [None]
  - Deep vein thrombosis [Recovered/Resolved]
